FAERS Safety Report 5052440-8 (Version None)
Quarter: 2006Q3

REPORT INFORMATION
  Report Type: 
  Country: None (occurrence: None)
  Receive Date: 20060717
  Receipt Date: 20050712
  Transmission Date: 20061208
  Serious: No
  Sender: FDA-Public Use
  Company Number: US-BRISTOL-MYERS SQUIBB COMPANY-13034467

PATIENT
  Age: 58 Year
  Sex: Female

DRUGS (2)
  1. ESTRACE [Suspect]
  2. ROGAINE [Concomitant]
     Indication: ALOPECIA
     Dates: start: 20050508

REACTIONS (1)
  - HEADACHE [None]
